FAERS Safety Report 17375910 (Version 1)
Quarter: 2020Q1

REPORT INFORMATION
  Report Type: Spontaneous
  Country: FI (occurrence: FI)
  Receive Date: 20200206
  Receipt Date: 20200206
  Transmission Date: 20200409
  Serious: Yes (Disabling)
  Sender: FDA-Public Use
  Company Number: FI-TEVA-2020-FI-1182004

PATIENT
  Age: 57 Year
  Sex: Female

DRUGS (2)
  1. LETROZOL STADA [Suspect]
     Active Substance: LETROZOLE
     Indication: BREAST CANCER
     Route: 048
     Dates: start: 20190401, end: 20190824
  2. ANASTROZOLE. [Suspect]
     Active Substance: ANASTROZOLE
     Indication: BREAST CANCER
     Dosage: 1 MILLIGRAM DAILY; 1,MG,DAILY
     Route: 048
     Dates: start: 20190825, end: 20200112

REACTIONS (6)
  - Tendon pain [Recovered/Resolved with Sequelae]
  - Carpal tunnel syndrome [Recovered/Resolved with Sequelae]
  - Epicondylitis [Recovered/Resolved with Sequelae]
  - Arthropathy [Recovered/Resolved with Sequelae]
  - Muscle rupture [Recovered/Resolved with Sequelae]
  - Muscle injury [Recovered/Resolved with Sequelae]

NARRATIVE: CASE EVENT DATE: 20200104
